FAERS Safety Report 11338660 (Version 1)
Quarter: 2015Q3

REPORT INFORMATION
  Report Type: Spontaneous
  Country: US (occurrence: US)
  Receive Date: 20150803
  Receipt Date: 20150803
  Transmission Date: 20151125
  Serious: No
  Sender: FDA-Public Use
  Company Number: US-ELI_LILLY_AND_COMPANY-US200711004619

PATIENT
  Age: 40 Year
  Sex: Male

DRUGS (3)
  1. LEXAPRO [Concomitant]
     Active Substance: ESCITALOPRAM OXALATE
     Indication: DEPRESSION
  2. STRATTERA [Suspect]
     Active Substance: ATOMOXETINE HYDROCHLORIDE
     Indication: ATTENTION DEFICIT/HYPERACTIVITY DISORDER
     Dosage: 60 MG, DAILY (1/D)
     Dates: start: 20070808, end: 200711
  3. STRATTERA [Suspect]
     Active Substance: ATOMOXETINE HYDROCHLORIDE
     Dosage: 60 MG, DAILY (1/D)
     Dates: start: 200711

REACTIONS (5)
  - Feeling abnormal [Unknown]
  - Chromaturia [Unknown]
  - Cold sweat [Unknown]
  - Dehydration [Unknown]
  - Feeling cold [Unknown]

NARRATIVE: CASE EVENT DATE: 200711
